FAERS Safety Report 13183376 (Version 1)
Quarter: 2017Q1

REPORT INFORMATION
  Report Type: Spontaneous
  Country: US (occurrence: US)
  Receive Date: 20170203
  Receipt Date: 20170203
  Transmission Date: 20170428
  Serious: No
  Sender: FDA-Public Use
  Company Number: US-BIOGEN-2017BI00349559

PATIENT
  Sex: Male

DRUGS (1)
  1. TYSABRI [Suspect]
     Active Substance: NATALIZUMAB
     Indication: MULTIPLE SCLEROSIS
     Route: 065
     Dates: start: 20161011

REACTIONS (10)
  - Paraesthesia [Unknown]
  - Dysarthria [Unknown]
  - Fatigue [Unknown]
  - Muscle tightness [Unknown]
  - Odynophagia [Unknown]
  - Muscle spasms [Unknown]
  - Cognitive disorder [Unknown]
  - Nausea [Unknown]
  - Pain [Unknown]
  - Myalgia [Unknown]
